FAERS Safety Report 8240154-2 (Version None)
Quarter: 2012Q1

REPORT INFORMATION
  Report Type: 
  Country: None (occurrence: None)
  Receive Date: 20120328
  Receipt Date: 20110804
  Transmission Date: 20120608
  Serious: No
  Sender: FDA-Public Use
  Company Number: US-PFIZER INC-K201100919

PATIENT
  Sex: Male
  Weight: 86.168 kg

DRUGS (2)
  1. MAXZIDE [Concomitant]
     Dosage: UNK
     Route: 048
  2. SKELAXIN [Suspect]
     Indication: INTERVERTEBRAL DISC PROTRUSION
     Dosage: UNK
     Route: 048
     Dates: start: 20110801, end: 20110802

REACTIONS (3)
  - FEELING JITTERY [None]
  - NERVOUSNESS [None]
  - PALPITATIONS [None]
